FAERS Safety Report 5057210-2 (Version None)
Quarter: 2006Q3

REPORT INFORMATION
  Report Type: 
  Country: None (occurrence: None)
  Receive Date: 20060721
  Receipt Date: 20050610
  Transmission Date: 20061208
  Serious: Yes (Other)
  Sender: FDA-Public Use
  Company Number: US-GLAXOSMITHKLINE-A0562121A

PATIENT
  Age: 70 Year
  Sex: Male
  Weight: 134.5 kg

DRUGS (5)
  1. AVANDIA [Suspect]
     Dosage: 8MG PER DAY
     Route: 048
     Dates: start: 20040411, end: 20050607
  2. GLIPIZIDE [Concomitant]
  3. LIPITOR [Concomitant]
  4. AVAPRO [Concomitant]
  5. PROCARDIA [Concomitant]

REACTIONS (8)
  - CARDIAC FAILURE CONGESTIVE [None]
  - COUGH [None]
  - DYSPNOEA [None]
  - GALLOP RHYTHM PRESENT [None]
  - JUGULAR VEIN DISTENSION [None]
  - NOCTURNAL DYSPNOEA [None]
  - OEDEMA [None]
  - WEIGHT INCREASED [None]
